FAERS Safety Report 11467204 (Version 2)
Quarter: 2015Q4

REPORT INFORMATION
  Report Type: Spontaneous
  Country: AR (occurrence: AR)
  Receive Date: 20150908
  Receipt Date: 20151016
  Transmission Date: 20160304
  Serious: Yes (Other)
  Sender: FDA-Public Use
  Company Number: AR-AMGEN-ARGSP2013019298

PATIENT
  Age: 58 Year
  Sex: Female

DRUGS (4)
  1. ENBREL [Suspect]
     Active Substance: ETANERCEPT
     Indication: RHEUMATOID ARTHRITIS
     Dosage: 50 MG, WEEKLY
     Route: 065
     Dates: start: 20130308
  2. METOTREXATO                        /00113801/ [Concomitant]
     Active Substance: METHOTREXATE
     Dosage: UNK
  3. ALENDRONATO [Concomitant]
     Active Substance: ALENDRONATE SODIUM
     Dosage: UNK
  4. ENBREL [Suspect]
     Active Substance: ETANERCEPT
     Dosage: 50 MG, WEEKLY
     Route: 065

REACTIONS (5)
  - Hepatic steatosis [Recovering/Resolving]
  - Inflammation [Recovering/Resolving]
  - Sjogren^s syndrome [Recovering/Resolving]
  - Hypotension [Recovered/Resolved]
  - Liver disorder [Recovering/Resolving]

NARRATIVE: CASE EVENT DATE: 20130308
